FAERS Safety Report 5387585-6 (Version None)
Quarter: 2007Q3

REPORT INFORMATION
  Report Type: 
  Country: None (occurrence: None)
  Receive Date: 20070711
  Receipt Date: 20070627
  Transmission Date: 20080115
  Serious: Yes (Hospitalization, Other)
  Sender: FDA-Public Use
  Company Number: 280003M07JPN

PATIENT
  Age: 44 Year
  Sex: Female
  Weight: 45 kg

DRUGS (1)
  1. FERTINORM P (MENOTROPHIN) [Suspect]
     Dosage: INTRAMUSCULAR
     Route: 030

REACTIONS (1)
  - SUBCUTANEOUS NODULE [None]
